FAERS Safety Report 8463690 (Version 2)
Quarter: 2013Q4

REPORT INFORMATION
  Report Type: Spontaneous
  Country: US (occurrence: US)
  Receive Date: 20120316
  Receipt Date: 20131112
  Transmission Date: 20140711
  Serious: Yes (Hospitalization)
  Sender: FDA-Public Use
  Company Number: US-BAYER-2012-025080

PATIENT
  Age: 35 Year
  Sex: Female

DRUGS (10)
  1. YASMIN [Suspect]
  2. FLUCONAZOLE [Concomitant]
     Dosage: 150 MG, UNK
  3. KEFLEX [Concomitant]
     Dosage: 500 MG, UNK
  4. LISINOPRIL [Concomitant]
  5. BUTALBITAL [Concomitant]
  6. DARVOCET [Concomitant]
  7. PHENERGAN [Concomitant]
  8. PROMETHAZINE [Concomitant]
  9. PREDNISONE [Concomitant]
  10. ACETAMINOPHEN W/CODEINE [Concomitant]

REACTIONS (2)
  - Carotid artery occlusion [None]
  - Cerebrovascular accident [None]
